FAERS Safety Report 6136611-5 (Version None)
Quarter: 2009Q1

REPORT INFORMATION
  Report Type: 
  Country: None (occurrence: None)
  Receive Date: 20090330
  Receipt Date: 20090330
  Transmission Date: 20090719
  Serious: Yes (Other)
  Sender: FDA-Public Use
  Company Number: US-PFIZER INC-2009170109

PATIENT
  Sex: Female
  Weight: 64 kg

DRUGS (10)
  1. LIPITOR [Suspect]
     Indication: BLOOD CHOLESTEROL INCREASED
     Dosage: 10 MG, 1X/DAY
     Dates: start: 20000101
  2. AMLODIPINE BESILATE [Suspect]
     Indication: HYPERTENSION
     Dates: start: 20090117, end: 20090211
  3. DILTIAZEM [Concomitant]
     Dosage: UNK
  4. FEMARA [Concomitant]
     Dosage: UNK
  5. DYAZIDE [Concomitant]
     Dosage: UNK
  6. FLECAINIDE ACETATE [Concomitant]
     Dosage: UNK
  7. ALENDRONATE SODIUM [Concomitant]
     Dosage: UNK
  8. OMEPRAZOLE [Concomitant]
     Dosage: UNK
  9. VITAMINS [Concomitant]
     Dosage: UNK
  10. CALCIUM [Concomitant]
     Dosage: UNK

REACTIONS (4)
  - HYPERTENSION [None]
  - OEDEMA PERIPHERAL [None]
  - PETECHIAE [None]
  - TREMOR [None]
